FAERS Safety Report 14111299 (Version 2)
Quarter: 2017Q4

REPORT INFORMATION
  Report Type: Spontaneous
  Country: BE (occurrence: BE)
  Receive Date: 20171020
  Receipt Date: 20171117
  Transmission Date: 20180321
  Serious: Yes (Other)
  Sender: FDA-Public Use
  Company Number: BE-AMGEN-BELSP2017158669

PATIENT
  Age: 32 Year
  Sex: Male
  Weight: 59 kg

DRUGS (1)
  1. ENBREL [Suspect]
     Active Substance: ETANERCEPT
     Indication: SPONDYLITIS
     Dosage: 50 MG, WEEKLY
     Route: 058
     Dates: start: 20170516, end: 20170701

REACTIONS (6)
  - Eye pain [Recovering/Resolving]
  - Eye inflammation [Recovering/Resolving]
  - Chorioretinitis [Recovering/Resolving]
  - Iridocyclitis [Recovering/Resolving]
  - Eyelid oedema [Recovering/Resolving]
  - Visual impairment [Recovering/Resolving]

NARRATIVE: CASE EVENT DATE: 201707
